APPROVED DRUG PRODUCT: FENOFIBRATE (MICRONIZED)
Active Ingredient: FENOFIBRATE
Strength: 134MG
Dosage Form/Route: CAPSULE;ORAL
Application: A209504 | Product #002 | TE Code: AB
Applicant: ANI PHARMACEUTICALS INC
Approved: Apr 30, 2018 | RLD: No | RS: No | Type: RX